FAERS Safety Report 16440272 (Version 1)
Quarter: 2019Q2

REPORT INFORMATION
  Report Type: Spontaneous
  Country: US (occurrence: US)
  Receive Date: 20190617
  Receipt Date: 20190617
  Transmission Date: 20190711
  Serious: No
  Sender: FDA-Public Use
  Company Number: US-BRACCO-2018US04294

PATIENT
  Age: 42 Year
  Sex: Male

DRUGS (1)
  1. MULTIHANCE [Suspect]
     Active Substance: GADOBENATE DIMEGLUMINE
     Indication: MAGNETIC RESONANCE CHOLANGIOPANCREATOGRAPHY
     Dosage: 20 ML, SINGLE
     Route: 042
     Dates: start: 20180730, end: 20180730

REACTIONS (4)
  - Nausea [Unknown]
  - Dyspnoea [Unknown]
  - Tremor [Unknown]
  - Incoherent [Unknown]

NARRATIVE: CASE EVENT DATE: 20180730
